FAERS Safety Report 24582068 (Version 1)
Quarter: 2024Q4

REPORT INFORMATION
  Report Type: Spontaneous
  Country: UM (occurrence: US)
  Receive Date: 20241105
  Receipt Date: 20241105
  Transmission Date: 20250114
  Serious: No
  Sender: SANDOZ
  Company Number: UM-SANDOZ-SDZ2024US092452

PATIENT
  Sex: Female

DRUGS (1)
  1. ALBUTEROL SULFATE [Suspect]
     Active Substance: ALBUTEROL SULFATE
     Indication: Product used for unknown indication
     Dosage: TWO PUFFS BY MOUTH EVERY 4 TO 6 HOURS AS NEEDED
     Route: 065

REACTIONS (2)
  - Drug dose omission by device [Unknown]
  - Product quality issue [Unknown]
